FAERS Safety Report 15776319 (Version 1)
Quarter: 2018Q4

REPORT INFORMATION
  Report Type: Spontaneous
  Country: BE (occurrence: BE)
  Receive Date: 20181231
  Receipt Date: 20181231
  Transmission Date: 20190205
  Serious: Yes (Hospitalization)
  Sender: FDA-Public Use
  Company Number: BE-NOVAST LABORATORIES, LTD-BE-2018NOV000442

PATIENT
  Age: 21 Year
  Sex: Female

DRUGS (1)
  1. NIFEDIPINE. [Suspect]
     Active Substance: NIFEDIPINE
     Indication: TOCOLYSIS
     Dosage: 10 MG, 4 TIMES IN 1 HOUR
     Route: 065

REACTIONS (1)
  - Cardiogenic shock [Recovered/Resolved]
